FAERS Safety Report 21860373 (Version 2)
Quarter: 2023Q1

REPORT INFORMATION
  Report Type: Spontaneous
  Country: FR (occurrence: FR)
  Receive Date: 20230113
  Receipt Date: 20230210
  Transmission Date: 20230418
  Serious: Yes (Death)
  Sender: FDA-Public Use
  Company Number: None

PATIENT
  Age: 35 Year
  Sex: Male
  Weight: 55 kg

DRUGS (4)
  1. OXYCODONE HYDROCHLORIDE [Suspect]
     Active Substance: OXYCODONE HYDROCHLORIDE
     Indication: Pain
     Dosage: UNK
     Route: 042
     Dates: start: 20220120
  2. MIDAZOLAM HYDROCHLORIDE [Suspect]
     Active Substance: MIDAZOLAM HYDROCHLORIDE
     Indication: Pain
     Dosage: UNK
     Route: 042
     Dates: start: 20220120
  3. AMITRIPTYLINE HYDROCHLORIDE [Suspect]
     Active Substance: AMITRIPTYLINE HYDROCHLORIDE
     Indication: Pain
     Dosage: UNK
     Route: 048
     Dates: start: 20220121
  4. METHADONE HYDROCHLORIDE [Suspect]
     Active Substance: METHADONE HYDROCHLORIDE
     Indication: Pain
     Dosage: 1MG 3 TIMES/DAY
     Route: 048
     Dates: start: 20220121, end: 20220125

REACTIONS (1)
  - Somnolence [Fatal]

NARRATIVE: CASE EVENT DATE: 20220122
